FAERS Safety Report 25523844 (Version 3)
Quarter: 2025Q3

REPORT INFORMATION
  Report Type: Report from Study
  Country: US (occurrence: US)
  Receive Date: 20250707
  Receipt Date: 20250722
  Transmission Date: 20251021
  Serious: Yes (Other)
  Sender: BAYER HEALTHCARE PHARMACEUTICALS INC.
  Company Number: US-BAYER-2025A086873

PATIENT
  Age: 81 Year
  Sex: Male
  Weight: 120.18 kg

DRUGS (18)
  1. ADEMPAS [Suspect]
     Active Substance: RIOCIGUAT
     Indication: Pulmonary arterial hypertension
     Dates: start: 20250423
  2. ADEMPAS [Suspect]
     Active Substance: RIOCIGUAT
     Indication: Pulmonary arterial hypertension
     Dosage: 1 MG, TID
     Route: 048
  3. ADEMPAS [Suspect]
     Active Substance: RIOCIGUAT
     Indication: Pulmonary arterial hypertension
     Dosage: 0.5 MG, TID
     Route: 048
  4. VITAMINS [Concomitant]
     Active Substance: VITAMINS
  5. FLOMAX [Concomitant]
     Active Substance: TAMSULOSIN HYDROCHLORIDE
  6. POTASSIUM CHLORIDE [Concomitant]
     Active Substance: POTASSIUM CHLORIDE
  7. LYRICA [Concomitant]
     Active Substance: PREGABALIN
  8. TAMSULOSIN HYDROCHLORIDE [Concomitant]
     Active Substance: TAMSULOSIN HYDROCHLORIDE
  9. KETOCONAZOLE [Concomitant]
     Active Substance: KETOCONAZOLE
  10. PREGABALIN [Concomitant]
     Active Substance: PREGABALIN
  11. CALCIUM\CHOLECALCIFEROL [Concomitant]
     Active Substance: CALCIUM\CHOLECALCIFEROL
  12. MINERALS\VITAMINS [Concomitant]
     Active Substance: MINERALS\VITAMINS
  13. ELIQUIS [Concomitant]
     Active Substance: APIXABAN
  14. OXYGEN [Concomitant]
     Active Substance: OXYGEN
  15. COENZYME Q10 [Concomitant]
     Active Substance: DIETARY SUPPLEMENT\UBIDECARENONE
  16. HYDROCORTISONE [Concomitant]
     Active Substance: HYDROCORTISONE
  17. DIGOXIN [Concomitant]
     Active Substance: DIGOXIN
  18. NICOTINAMIDE [Concomitant]
     Active Substance: NIACINAMIDE

REACTIONS (5)
  - Pulmonary angioplasty [None]
  - Loss of consciousness [None]
  - Wrong technique in product usage process [None]
  - Dizziness [None]
  - Hypotension [None]

NARRATIVE: CASE EVENT DATE: 20250101
